FAERS Safety Report 9391240 (Version 1)
Quarter: 2013Q3

REPORT INFORMATION
  Report Type: Report from Study
  Country: NL (occurrence: NL)
  Receive Date: 20130709
  Receipt Date: 20130709
  Transmission Date: 20140515
  Serious: Yes (Hospitalization, Other)
  Sender: FDA-Public Use
  Company Number: NL-009507513-1211NLD007198

PATIENT
  Age: 80 Year
  Sex: Female
  Weight: 84 kg

DRUGS (19)
  1. BLINDED EZETIMIBE (+) SIMVASTATIN [Suspect]
     Indication: ACUTE CORONARY SYNDROME
     Dosage: UNK
     Route: 048
     Dates: start: 20070502
  2. BLINDED PLACEBO [Suspect]
     Indication: ACUTE CORONARY SYNDROME
     Dosage: UNK
     Route: 048
     Dates: start: 20070502
  3. BLINDED POST TRIAL THERAPY [Suspect]
     Indication: ACUTE CORONARY SYNDROME
     Dosage: UNK
     Route: 048
     Dates: start: 20070502
  4. BLINDED PRE TRIAL THERAPY [Suspect]
     Indication: ACUTE CORONARY SYNDROME
     Dosage: UNK
     Route: 048
     Dates: start: 20070502
  5. BLINDED SIMVASTATIN [Suspect]
     Indication: ACUTE CORONARY SYNDROME
     Dosage: UNK
     Route: 048
     Dates: start: 20070502
  6. BLINDED THERAPY [Suspect]
     Indication: ACUTE CORONARY SYNDROME
     Dosage: UNK
     Route: 048
     Dates: start: 20070502
  7. FUROSEMIDE [Suspect]
     Dosage: 40 MG TOTAL DAILY
     Route: 048
     Dates: start: 20121005, end: 20121113
  8. PANTOPRAZOLE [Suspect]
     Dosage: 40 MG TOTAL DAILY
     Route: 048
     Dates: start: 20120826, end: 20121113
  9. SPIRONOLACTONE [Suspect]
     Dosage: 25 MG TOTAL DAILY
     Route: 048
     Dates: start: 20120930, end: 20121113
  10. METFORMIN [Concomitant]
     Dosage: 2000 MG TOTAL DAILY
     Route: 048
     Dates: start: 20070505, end: 20121113
  11. TOLBUTAMIDE [Concomitant]
     Dosage: 1000 MG TOTAL DAILY
     Route: 048
     Dates: start: 20070502
  12. ISOSORBIDE MONONITRATE [Concomitant]
     Dosage: 50 MG TOTAL DAILY
     Route: 048
     Dates: start: 20120823
  13. TICAGRELOR [Concomitant]
     Dosage: 180 MG TOTAL DAILY
     Route: 048
     Dates: start: 20120817
  14. NITROGLYCERIN [Concomitant]
     Dosage: 0.4 MG, PRN
     Route: 060
     Dates: start: 20120903
  15. PHENPROCOUMON [Concomitant]
     Dosage: 3 MG, PRN
     Route: 048
     Dates: start: 20120817
  16. ACTONEL [Concomitant]
     Dosage: 35 MG, QW
     Route: 048
     Dates: start: 20100810
  17. CARVEDILOL [Concomitant]
     Dosage: 25 MG TOTAL DAILY
     Route: 048
     Dates: start: 20121001
  18. LISINOPRIL [Concomitant]
     Dosage: 20 MG TOTAL DAILY
     Route: 048
     Dates: start: 20111207, end: 20121113
  19. LOPERAMIDE HYDROCHLORIDE [Concomitant]
     Dosage: 1 MG, PRN
     Route: 048
     Dates: start: 20121015

REACTIONS (2)
  - Renal failure [Recovered/Resolved]
  - Renal neoplasm [Recovered/Resolved]
